FAERS Safety Report 8272642-7 (Version None)
Quarter: 2012Q2

REPORT INFORMATION
  Report Type: 
  Country: None (occurrence: None)
  Receive Date: 20120410
  Receipt Date: 20120328
  Transmission Date: 20120825
  Serious: Yes (Hospitalization, Other)
  Sender: FDA-Public Use
  Company Number: BR-ELI_LILLY_AND_COMPANY-BR201203008790

PATIENT
  Sex: Female
  Weight: 47 kg

DRUGS (3)
  1. HUMULIN N [Suspect]
     Indication: TYPE 1 DIABETES MELLITUS
     Dosage: UNK, BID
     Route: 065
     Dates: start: 19820101
  2. HUMULIN R [Suspect]
     Dosage: UNK, BID
     Route: 065
     Dates: start: 19820101
  3. HUMALOG [Suspect]
     Dosage: UNK, UNKNOWN
     Route: 065

REACTIONS (3)
  - PAIN [None]
  - OSTEOMYELITIS [None]
  - LIMB INJURY [None]
